FAERS Safety Report 5551413-6 (Version None)
Quarter: 2007Q4

REPORT INFORMATION
  Report Type: 
  Country: None (occurrence: None)
  Receive Date: 20071212
  Receipt Date: 20071201
  Transmission Date: 20080405
  Serious: Yes (Other)
  Sender: FDA-Public Use
  Company Number: GB-ROCHE-534591

PATIENT
  Age: 67 Year
  Sex: Female
  Weight: 106.5 kg

DRUGS (1)
  1. ORLISTAT [Suspect]
     Indication: OBESITY
     Route: 048
     Dates: start: 20070429, end: 20071124

REACTIONS (1)
  - MYOCARDIAL INFARCTION [None]
